FAERS Safety Report 15371582 (Version 2)
Quarter: 2018Q3

REPORT INFORMATION
  Report Type: Report from Study
  Country: IT (occurrence: IT)
  Receive Date: 20180911
  Receipt Date: 20180919
  Transmission Date: 20181010
  Serious: Yes (Hospitalization)
  Sender: FDA-Public Use
  Company Number: IT-EXELIXIS-XL18418015761

PATIENT
  Age: 68 Year
  Sex: Female
  Weight: 45.3 kg

DRUGS (13)
  1. PEPTAZOL [Concomitant]
     Active Substance: PANTOPRAZOLE SODIUM
  2. ANNISTER [Concomitant]
  3. CARDIOASPIRINA [Concomitant]
     Active Substance: ASPIRIN
  4. XANAX [Concomitant]
     Active Substance: ALPRAZOLAM
  5. BISOPROLOLO [Concomitant]
     Active Substance: BISOPROLOL FUMARATE
  6. BLINDED XL184 [Suspect]
     Active Substance: CABOZANTINIB
     Indication: MEDULLARY THYROID CANCER
     Dosage: 140 OR 60 MG, QD
     Route: 048
     Dates: start: 20180709
  7. EUTIROX [Concomitant]
     Active Substance: LEVOTHYROXINE SODIUM
  8. ATORVASTATINA [Concomitant]
     Active Substance: ATORVASTATIN
  9. NORVASC [Concomitant]
     Active Substance: AMLODIPINE BESYLATE
  10. BLINDED XL184 [Suspect]
     Active Substance: CABOZANTINIB
     Indication: MEDULLARY THYROID CANCER
     Dosage: 140 OR 60 MG, QD
     Route: 048
     Dates: start: 20180709
  11. ROCALTROL [Concomitant]
     Active Substance: CALCITRIOL
  12. DELTACORTENE [Concomitant]
     Active Substance: PREDNISONE
  13. IDEOS [Concomitant]
     Active Substance: CALCIUM CARBONATE\CHOLECALCIFEROL

REACTIONS (1)
  - Blood bilirubin increased [Recovered/Resolved]

NARRATIVE: CASE EVENT DATE: 20180904
